FAERS Safety Report 7958804-4 (Version None)
Quarter: 2011Q4

REPORT INFORMATION
  Report Type: 
  Country: None (occurrence: None)
  Receive Date: 20111206
  Receipt Date: 20111128
  Transmission Date: 20120403
  Serious: Yes (Hospitalization, Other)
  Sender: FDA-Public Use
  Company Number: JP-JNJFOC-20111102535

PATIENT
  Age: 67 Year
  Sex: Female

DRUGS (23)
  1. FENTANYL-100 [Suspect]
     Route: 062
     Dates: start: 20101204
  2. OXYCONTIN [Suspect]
     Route: 048
  3. OXYCONTIN [Suspect]
     Indication: ANALGESIC THERAPY
     Route: 048
     Dates: start: 20101123
  4. OXYCODONE HYDROCHLORIDE [Suspect]
     Indication: BONE PAIN
     Dosage: 400-500 MG
     Route: 048
     Dates: start: 20111127
  5. FENTANYL-100 [Suspect]
     Route: 062
     Dates: start: 20101204
  6. FENTANYL-100 [Suspect]
     Indication: BONE PAIN
     Route: 062
     Dates: start: 20101204
  7. OXYCONTIN [Suspect]
     Indication: BONE PAIN
     Route: 048
  8. MORPHINE HYDROCHLORIDE [Suspect]
     Route: 058
     Dates: start: 20110520
  9. OXYCONTIN [Suspect]
     Indication: MULTIPLE MYELOMA
     Route: 048
     Dates: start: 20101123
  10. OXYCONTIN [Suspect]
     Route: 048
  11. OXYCONTIN [Suspect]
     Route: 048
     Dates: start: 20101123
  12. FENTANYL-100 [Suspect]
     Indication: CANCER PAIN
     Route: 062
  13. FENTANYL-100 [Suspect]
     Indication: ANALGESIC THERAPY
     Route: 062
  14. FENTANYL-100 [Suspect]
     Route: 062
  15. OXYCONTIN [Suspect]
     Indication: CANCER PAIN
     Route: 048
     Dates: start: 20101123
  16. FENTANYL-100 [Suspect]
     Route: 062
     Dates: start: 20101204
  17. MORPHINE HYDROCHLORIDE [Suspect]
     Indication: ANALGESIC THERAPY
     Route: 058
     Dates: start: 20110523, end: 20110524
  18. CHEMOTHERAPY [Suspect]
     Indication: MULTIPLE MYELOMA
     Route: 065
  19. RADIOTHERAPY [Suspect]
     Indication: MULTIPLE MYELOMA
     Route: 065
  20. OXYCODONE HYDROCHLORIDE [Suspect]
     Indication: CANCER PAIN
     Dosage: 400-500 MG
     Route: 048
     Dates: start: 20111127
  21. OXYCODONE HYDROCHLORIDE [Suspect]
     Indication: MULTIPLE MYELOMA
     Dosage: 400-500 MG
     Route: 048
     Dates: start: 20111127
  22. FENTANYL-100 [Suspect]
     Indication: MULTIPLE MYELOMA
     Route: 062
  23. OXYCONTIN [Suspect]
     Route: 048

REACTIONS (1)
  - PNEUMATOSIS INTESTINALIS [None]
